FAERS Safety Report 13043068 (Version 1)
Quarter: 2016Q4

REPORT INFORMATION
  Report Type: Spontaneous
  Country: FR (occurrence: FR)
  Receive Date: 20161219
  Receipt Date: 20161219
  Transmission Date: 20170207
  Serious: Yes (Hospitalization)
  Sender: FDA-Public Use
  Company Number: PHHY2016FR172543

PATIENT
  Age: 60 Year
  Sex: Male
  Weight: 79 kg

DRUGS (3)
  1. COARTEM [Suspect]
     Active Substance: ARTEMETHER\LUMEFANTRINE
     Indication: MALARIA
     Dosage: UNK
     Route: 048
     Dates: start: 20160903, end: 20160906
  2. LERCAN [Concomitant]
     Active Substance: LERCANIDIPINE
     Indication: HYPERTENSION
     Route: 065
  3. COARTEM [Suspect]
     Active Substance: ARTEMETHER\LUMEFANTRINE
     Dosage: UNK
     Route: 048
     Dates: start: 20160925, end: 20160926

REACTIONS (1)
  - Intravascular haemolysis [Recovering/Resolving]

NARRATIVE: CASE EVENT DATE: 20160927
